FAERS Safety Report 15626332 (Version 1)
Quarter: 2018Q4

REPORT INFORMATION
  Report Type: Spontaneous
  Country: US (occurrence: US)
  Receive Date: 20181116
  Receipt Date: 20181116
  Transmission Date: 20190205
  Serious: No
  Sender: FDA-Public Use
  Company Number: US-SA-2018SA314469

PATIENT
  Sex: Male

DRUGS (15)
  1. DIAZEPAM. [Concomitant]
     Active Substance: DIAZEPAM
  2. OXAZEPAM. [Concomitant]
     Active Substance: OXAZEPAM
  3. CHANTIX [Concomitant]
     Active Substance: VARENICLINE TARTRATE
  4. ENTRESTO [Concomitant]
     Active Substance: SACUBITRIL\VALSARTAN
  5. HYDROCHLOROTH [Concomitant]
     Active Substance: HYDROCHLOROTHIAZIDE
  6. PRALUENT [Suspect]
     Active Substance: ALIROCUMAB
     Indication: ARTERIOSCLEROSIS
     Dosage: 150 MG, QOW
     Route: 058
     Dates: start: 20170318
  7. CLOPIDOGREL [Concomitant]
     Active Substance: CLOPIDOGREL BISULFATE
  8. DULOXETINE. [Concomitant]
     Active Substance: DULOXETINE
  9. KLOR-CON [Concomitant]
     Active Substance: POTASSIUM CHLORIDE
  10. LORTAB [LORATADINE] [Concomitant]
  11. PRAMIPEXOLE. [Concomitant]
     Active Substance: PRAMIPEXOLE
  12. RANEXA [Concomitant]
     Active Substance: RANOLAZINE
  13. VALIUM [Concomitant]
     Active Substance: DIAZEPAM
  14. CARVEDILOL. [Concomitant]
     Active Substance: CARVEDILOL
  15. DIGOXIN. [Concomitant]
     Active Substance: DIGOXIN

REACTIONS (2)
  - Pruritus [Recovered/Resolved]
  - Skin exfoliation [Not Recovered/Not Resolved]
